FAERS Safety Report 8177998-1 (Version None)
Quarter: 2012Q1

REPORT INFORMATION
  Report Type: 
  Country: None (occurrence: None)
  Receive Date: 20120301
  Receipt Date: 20120223
  Transmission Date: 20120608
  Serious: Yes (Death, Hospitalization, Other)
  Sender: FDA-Public Use
  Company Number: US-BAYER-200940132NA

PATIENT
  Age: 76 Year
  Sex: Female
  Weight: 72.57 kg

DRUGS (33)
  1. LOPRESSOR [Concomitant]
     Dosage: 5 MG, BID
     Dates: start: 20050225
  2. HEPARIN [Concomitant]
     Dosage: 100 CC Q6HR
     Route: 042
     Dates: start: 20050224
  3. ANCEF [Concomitant]
     Dosage: 1 GM, X2 DOSES
     Dates: start: 20050225
  4. VERSED [Concomitant]
     Dosage: 5.5 MG, UNK
     Route: 042
     Dates: start: 20050225
  5. PROPOFOL [Concomitant]
     Dosage: 30 MG, UNK
     Route: 042
     Dates: start: 20050225
  6. LEVOXYL [Concomitant]
     Dosage: 0.125 MG, QD
     Route: 048
  7. GLYBURIDE [Concomitant]
     Dosage: 5 MG, QD
  8. LOPRESSOR [Concomitant]
     Dosage: 25 MG, BID
     Route: 048
     Dates: start: 20050224
  9. SODIUM BICARBONATE [Concomitant]
     Dosage: 50 MEQ, TID
     Route: 042
     Dates: start: 20050225
  10. INTEGRILIN [Concomitant]
     Dosage: 180 MCG/KG/MIN
     Route: 042
  11. TRASYLOL [Suspect]
     Indication: CORONARY ARTERY BYPASS
     Dosage: 200 ML/HR
     Route: 042
     Dates: start: 20050225, end: 20050225
  12. CLONIDINE [Concomitant]
     Dosage: 0.2 MG, BID
     Route: 048
  13. LIPITOR [Concomitant]
     Dosage: 20 MG, QD
     Route: 048
  14. CALCIUM [Concomitant]
     Dosage: 600 MG, BID
     Route: 048
  15. CALCIUM [Concomitant]
     Dosage: 1 GM, UNK
     Route: 042
     Dates: start: 20050225
  16. MAGNESIUM GLUCONATE [Concomitant]
     Dosage: UNK
     Route: 042
     Dates: start: 20050225
  17. MANNITOL [Concomitant]
     Dosage: 25 GM, UNK
     Route: 042
     Dates: start: 20050225
  18. FLOVENT [Concomitant]
     Dosage: 220 MCG/ML, 2 PUFF
  19. SUFENTANIL CITRATE [Concomitant]
     Dosage: 25.25 MG, UNK
     Route: 042
     Dates: start: 20050225
  20. COZAAR [Concomitant]
     Dosage: 100 MG, QD
     Route: 048
  21. XOPENEX [Concomitant]
     Dosage: 1.25 MG/ML,  BID
  22. ASPIRIN [Concomitant]
     Dosage: 81 MG, QD
     Route: 048
     Dates: start: 20050224
  23. EPINEPHRINE [Concomitant]
     Dosage: UNK
     Route: 042
     Dates: start: 20050225
  24. TRASYLOL [Suspect]
     Indication: MITRAL VALVE REPAIR
     Dosage: 1 ML/HR
     Route: 042
     Dates: start: 20050225, end: 20050225
  25. NEXIUM [Concomitant]
     Dosage: 40 MG, QD
     Route: 048
  26. HEPARIN [Concomitant]
     Dosage: 35000 U, UNK
     Route: 042
     Dates: start: 20050225
  27. ANCEF [Concomitant]
     Dosage: 1GM
     Route: 042
     Dates: start: 20050224
  28. AMICAR [Concomitant]
     Dosage: 10 GMS, UNK
     Route: 042
     Dates: start: 20050225
  29. NOREPINEPHRINE BITARTRATE [Concomitant]
     Dosage: UNK
     Route: 042
     Dates: start: 20050225
  30. LASIX [Concomitant]
     Dosage: 20 MG, QD
     Route: 048
  31. VITAMIN E [Concomitant]
     Dosage: 400 MG, QD
  32. INTEGRILIN [Concomitant]
     Dosage: 2 MCG/KG/MIN
     Route: 042
     Dates: start: 20050224, end: 20050225
  33. SEVOFLURANE [Concomitant]
     Dosage: UNK
     Dates: start: 20050225

REACTIONS (14)
  - ANXIETY [None]
  - DEATH [None]
  - RENAL FAILURE [None]
  - FEAR [None]
  - RENAL INJURY [None]
  - ANHEDONIA [None]
  - RENAL IMPAIRMENT [None]
  - MULTI-ORGAN FAILURE [None]
  - EMOTIONAL DISORDER [None]
  - STRESS [None]
  - UNEVALUABLE EVENT [None]
  - PAIN [None]
  - INJURY [None]
  - EMOTIONAL DISTRESS [None]
